FAERS Safety Report 8524964-X (Version None)
Quarter: 2012Q3

REPORT INFORMATION
  Report Type: 
  Country: None (occurrence: None)
  Receive Date: 20120720
  Receipt Date: 20120713
  Transmission Date: 20120928
  Serious: Yes (Other)
  Sender: FDA-Public Use
  Company Number: DE-ABBOTT-12P-062-0956265-00

PATIENT
  Sex: Male

DRUGS (1)
  1. VALPROATE SODIUM [Suspect]
     Indication: MATERNAL EXPOSURE TIMING UNSPECIFIED
     Route: 064

REACTIONS (5)
  - MOTOR DEVELOPMENTAL DELAY [None]
  - HYPOTONIA [None]
  - MATERNAL EXPOSURE DURING PREGNANCY [None]
  - POSTURE ABNORMAL [None]
  - AUTISM [None]
